FAERS Safety Report 15130709 (Version 1)
Quarter: 2018Q3

REPORT INFORMATION
  Report Type: Spontaneous
  Country: US (occurrence: US)
  Receive Date: 20180711
  Receipt Date: 20180711
  Transmission Date: 20181010
  Serious: No
  Sender: FDA-Public Use
  Company Number: US-AMNEAL PHARMACEUTICALS-2018AMN00199

PATIENT
  Sex: Male
  Weight: 78.91 kg

DRUGS (1)
  1. DICLOFENAC SODIUM. [Suspect]
     Active Substance: DICLOFENAC SODIUM
     Indication: JOINT INJURY
     Dosage: 2 G, 4X/DAY
     Route: 061
     Dates: start: 20180404

REACTIONS (1)
  - Drug ineffective [Not Recovered/Not Resolved]
